FAERS Safety Report 9271213 (Version 2)
Quarter: 2013Q3

REPORT INFORMATION
  Report Type: Report from Study
  Country: US (occurrence: US)
  Receive Date: 20130506
  Receipt Date: 20130704
  Transmission Date: 20140515
  Serious: Yes (Hospitalization)
  Sender: FDA-Public Use
  Company Number: US-ROCHE-1219821

PATIENT
  Age: 65 Year
  Sex: Male

DRUGS (8)
  1. MYCOPHENOLATE MOFETIL [Suspect]
     Indication: RENAL TRANSPLANT
     Route: 065
  2. NEORAL [Suspect]
     Indication: RENAL TRANSPLANT
     Route: 048
     Dates: start: 20060712
  3. PREDNISOLONE [Suspect]
     Indication: RENAL TRANSPLANT
     Route: 065
  4. PRAVASTATIN [Concomitant]
  5. OMEPRAZOLE [Concomitant]
  6. LASIX [Concomitant]
  7. NORVASC [Concomitant]
  8. LEVEMIR [Concomitant]

REACTIONS (2)
  - Pneumonia [Recovered/Resolved]
  - Chronic obstructive pulmonary disease [Recovered/Resolved]
